FAERS Safety Report 9332157 (Version 1)
Quarter: 2013Q2

REPORT INFORMATION
  Report Type: Spontaneous
  Country: BR (occurrence: BR)
  Receive Date: 20130606
  Receipt Date: 20130606
  Transmission Date: 20140414
  Serious: Yes (Other)
  Sender: FDA-Public Use
  Company Number: BR-BIOGENIDEC-2013BI051019

PATIENT
  Age: 40 Year
  Sex: Female

DRUGS (6)
  1. AVONEX [Suspect]
     Indication: MULTIPLE SCLEROSIS
     Route: 030
     Dates: start: 20040506, end: 20130127
  2. AVONEX [Suspect]
     Indication: MULTIPLE SCLEROSIS
     Route: 030
     Dates: start: 20130224
  3. EXODUS [Concomitant]
     Indication: ANTIDEPRESSANT THERAPY
  4. FRONTAL XR [Concomitant]
     Indication: ANXIETY
     Route: 048
  5. DIPYRONE [Concomitant]
     Indication: PROPHYLAXIS
  6. BI-PROFENIDE [Concomitant]
     Indication: PROPHYLAXIS

REACTIONS (2)
  - Dengue fever [Recovered/Resolved]
  - Tonsillitis [Recovered/Resolved]
